FAERS Safety Report 20606190 (Version 1)
Quarter: 2022Q1

REPORT INFORMATION
  Report Type: Report from Study
  Country: US (occurrence: US)
  Receive Date: 20220317
  Receipt Date: 20220317
  Transmission Date: 20220423
  Serious: Yes (Other)
  Sender: FDA-Public Use
  Company Number: US-TAKEDA-2022TUS016603

PATIENT
  Age: 48 Year
  Sex: Female

DRUGS (1)
  1. HUMAN IMMUNOGLOBULIN G [Suspect]
     Active Substance: HUMAN IMMUNOGLOBULIN G
     Indication: Primary immunodeficiency syndrome
     Route: 042

REACTIONS (4)
  - Limbic encephalitis [Unknown]
  - Adrenal insufficiency [Unknown]
  - Seizure [Unknown]
  - Photophobia [Unknown]

NARRATIVE: CASE EVENT DATE: 20220309
